FAERS Safety Report 25281953 (Version 6)
Quarter: 2025Q3

REPORT INFORMATION
  Report Type: Spontaneous
  Country: EU (occurrence: EU)
  Receive Date: 20250508
  Receipt Date: 20250930
  Transmission Date: 20251021
  Serious: Yes (Hospitalization, Other)
  Sender: RHYTHM PHARMACEUTICALS
  Company Number: EU-Rhythm Pharmaceuticals, Inc.-2025RHM000090

PATIENT

DRUGS (23)
  1. IMCIVREE [Suspect]
     Active Substance: SETMELANOTIDE
     Indication: Obesity
     Dosage: 0.25 MILLIGRAM, QD
     Route: 058
     Dates: start: 20250311
  2. IMCIVREE [Suspect]
     Active Substance: SETMELANOTIDE
     Dosage: 0.75 MILLIGRAM, QD
     Route: 058
     Dates: start: 20250326, end: 20250327
  3. IMCIVREE [Suspect]
     Active Substance: SETMELANOTIDE
     Dosage: 0.25 MILLIGRAM, QD
     Route: 058
     Dates: start: 20250401
  4. IMCIVREE [Suspect]
     Active Substance: SETMELANOTIDE
     Dosage: 0.5 MILLIGRAM, QD
     Route: 058
     Dates: start: 20250416
  5. IMCIVREE [Suspect]
     Active Substance: SETMELANOTIDE
     Dosage: 1 MILLIGRAM, QD
     Route: 058
  6. IMCIVREE [Suspect]
     Active Substance: SETMELANOTIDE
     Dosage: 1.5 MILLIGRAM, QD
     Route: 058
  7. IMCIVREE [Suspect]
     Active Substance: SETMELANOTIDE
     Dosage: 2.5 MILLIGRAM, QD
     Route: 058
  8. LEVOTHYROXINE [Concomitant]
     Active Substance: LEVOTHYROXINE
     Indication: Product used for unknown indication
     Dosage: 200 MICROGRAM, QD
  9. LEVOTHYROXINE [Concomitant]
     Active Substance: LEVOTHYROXINE
  10. DESMOPRESSIN [Concomitant]
     Active Substance: DESMOPRESSIN
     Indication: Product used for unknown indication
     Dosage: 120 MILLIGRAM, BID
     Route: 060
  11. DESMOPRESSIN [Concomitant]
     Active Substance: DESMOPRESSIN
     Dosage: 60 MILLIGRAM, QD
     Route: 060
  12. HYDROCORTISONE [Concomitant]
     Active Substance: HYDROCORTISONE
     Indication: Product used for unknown indication
     Dosage: 20 MILLIGRAM, QD
  13. HYDROCORTISONE [Concomitant]
     Active Substance: HYDROCORTISONE
     Dosage: 10 MILLIGRAM, BID
  14. UTROGESTAN [Concomitant]
     Active Substance: PROGESTERONE
     Indication: Product used for unknown indication
  15. ESTRADIOL [Concomitant]
     Active Substance: ESTRADIOL
     Indication: Product used for unknown indication
  16. WARFARIN SODIUM [Concomitant]
     Active Substance: WARFARIN SODIUM
     Indication: Product used for unknown indication
     Dosage: 7 MILLIGRAM, QD, INR TARGER: BETWEEN 2-3
  17. CHOLECALCIFEROL [Concomitant]
     Active Substance: CHOLECALCIFEROL
     Indication: Product used for unknown indication
  18. GLICLAZIDE [Concomitant]
     Active Substance: GLICLAZIDE
     Indication: Product used for unknown indication
     Dosage: 2 DOSAGE FORM, BID (60 MR)
  19. GLICLAZIDE [Concomitant]
     Active Substance: GLICLAZIDE
     Dosage: 1 DOSAGE FORM, QD (60 MR, AT M3 VISIT AND IN THE AE FORM)
  20. OZEMPIC [Concomitant]
     Active Substance: SEMAGLUTIDE
     Indication: Product used for unknown indication
     Dosage: 1 MILLIGRAM, QW
     Route: 058
  21. DAPAGLIFLOZIN [Concomitant]
     Active Substance: DAPAGLIFLOZIN
     Indication: Product used for unknown indication
     Dosage: 10 MILLIGRAM, QD IN THE MORNING
  22. RAMIPRIL [Concomitant]
     Active Substance: RAMIPRIL
     Indication: Product used for unknown indication
     Dosage: MORNING, 2.5 MILLIGRAM, QD
     Dates: end: 202506
  23. ATORVASTATIN [Concomitant]
     Active Substance: ATORVASTATIN
     Indication: Product used for unknown indication
     Dosage: 80 MILLIGRAM, QD IN THE EVENING

REACTIONS (11)
  - Adrenal insufficiency [Recovered/Resolved]
  - Erysipelas [Recovered/Resolved]
  - Asthenia [Recovered/Resolved]
  - Vomiting [Recovered/Resolved]
  - Diarrhoea [Recovered/Resolved]
  - Lymphoedema [Recovered/Resolved]
  - White blood cell count decreased [Not Recovered/Not Resolved]
  - Lipase increased [Unknown]
  - Off label use [Not Recovered/Not Resolved]
  - Drug intolerance [Unknown]
  - Cough [Not Recovered/Not Resolved]

NARRATIVE: CASE EVENT DATE: 20250326
